FAERS Safety Report 4433351-5 (Version None)
Quarter: 2004Q3

REPORT INFORMATION
  Report Type: 
  Country: None (occurrence: None)
  Receive Date: 20040824
  Receipt Date: 20040817
  Transmission Date: 20050211
  Serious: Yes (Death, Hospitalization)
  Sender: FDA-Public Use
  Company Number: 04-07-1009

PATIENT
  Age: 75 Year
  Sex: Male

DRUGS (13)
  1. QVAR [Suspect]
     Indication: ASTHMA
     Dosage: INHALATION
     Route: 055
     Dates: start: 20030922, end: 20040311
  2. CARBOPLATIN [Suspect]
     Indication: LUNG NEOPLASM MALIGNANT
  3. ETOPOSIDE [Suspect]
     Indication: LUNG NEOPLASM MALIGNANT
  4. ALBUTEROL SULFATE [Concomitant]
  5. GAVISCON [Concomitant]
  6. TRAZODONE [Concomitant]
  7. NYSTATIN [Concomitant]
  8. DILTIAZEM HYDROCHLORIDE [Concomitant]
  9. ATORVASTATIN CALCIUM [Concomitant]
  10. PROCTOSEDYL [Concomitant]
  11. ACETAMINOPHEN [Concomitant]
  12. MIGRALEVE [Concomitant]
  13. FLUTICASONE PROPIONATE [Concomitant]

REACTIONS (12)
  - BRONCHIAL CARCINOMA [None]
  - CHRONIC OBSTRUCTIVE AIRWAYS DISEASE EXACERBATED [None]
  - FISTULA [None]
  - GASTROOESOPHAGEAL REFLUX DISEASE [None]
  - GENERAL PHYSICAL HEALTH DETERIORATION [None]
  - HAEMOPTYSIS [None]
  - INTESTINAL HAEMORRHAGE [None]
  - LYMPHADENOPATHY [None]
  - PANCYTOPENIA [None]
  - SEPSIS [None]
  - TRACHEAL MASS [None]
  - WEIGHT DECREASED [None]
